FAERS Safety Report 5723247-0 (Version None)
Quarter: 2008Q2

REPORT INFORMATION
  Report Type: 
  Country: None (occurrence: None)
  Receive Date: 20080430
  Receipt Date: 20080207
  Transmission Date: 20081010
  Serious: No
  Sender: FDA-Public Use
  Company Number: US-ASTRAZENECA-2008UW02704

PATIENT
  Sex: Female

DRUGS (2)
  1. NEXIUM [Suspect]
     Route: 048
     Dates: start: 20071001
  2. PREVACID [Concomitant]
     Indication: COUGH

REACTIONS (3)
  - ARTHRALGIA [None]
  - COUGH [None]
  - JOINT STIFFNESS [None]
